FAERS Safety Report 11875083 (Version 1)
Quarter: 2015Q4

REPORT INFORMATION
  Report Type: Spontaneous
  Country: US (occurrence: US)
  Receive Date: 20151229
  Receipt Date: 20151229
  Transmission Date: 20160305
  Serious: No
  Sender: FDA-Public Use
  Company Number: US-DRREDDYS-USA/USA/15/0045778

PATIENT
  Age: 97 Year
  Sex: Male

DRUGS (3)
  1. LIDO DERM PATCH [Concomitant]
     Indication: PAIN
     Route: 065
  2. HABITROL [Suspect]
     Active Substance: NICOTINE
     Indication: SMOKING CESSATION THERAPY
     Route: 062
     Dates: start: 20150125, end: 20150129
  3. NITRO GLYCERIN PATCHES [Suspect]
     Active Substance: NITROGLYCERIN
     Indication: CARDIAC DISORDER
     Route: 065

REACTIONS (10)
  - Confusional state [Not Recovered/Not Resolved]
  - Memory impairment [Not Recovered/Not Resolved]
  - Nightmare [Not Recovered/Not Resolved]
  - Delusion [Unknown]
  - Heart rate increased [Unknown]
  - Drug prescribing error [Unknown]
  - Blood pressure increased [Unknown]
  - Agitation [Not Recovered/Not Resolved]
  - Abnormal dreams [Not Recovered/Not Resolved]
  - Tremor [Not Recovered/Not Resolved]

NARRATIVE: CASE EVENT DATE: 20150127
